FAERS Safety Report 5514831-8 (Version None)
Quarter: 2007Q4

REPORT INFORMATION
  Report Type: 
  Country: None (occurrence: None)
  Receive Date: 20071109
  Receipt Date: 20071026
  Transmission Date: 20080405
  Serious: Yes (Hospitalization)
  Sender: FDA-Public Use
  Company Number: 238781K07USA

PATIENT
  Age: 42 Year
  Sex: Female
  Weight: 81.6475 kg

DRUGS (5)
  1. REBIF [Suspect]
     Indication: MULTIPLE SCLEROSIS
     Dosage: 44 MCG, 3 IN 1 WEEKS, SUBCUTANEOUS
     Route: 058
     Dates: start: 20070719, end: 20070917
  2. CYTOXAN [Concomitant]
  3. SOLU-MEDROL [Concomitant]
  4. COUMADIN [Concomitant]
  5. NEXIUM [Concomitant]

REACTIONS (3)
  - DIVERTICULITIS [None]
  - FEELING ABNORMAL [None]
  - INTESTINAL PERFORATION [None]
